FAERS Safety Report 14900657 (Version 4)
Quarter: 2021Q2

REPORT INFORMATION
  Report Type: Spontaneous
  Country: US (occurrence: US)
  Receive Date: 20180516
  Receipt Date: 20210421
  Transmission Date: 20210716
  Serious: No
  Sender: FDA-Public Use
  Company Number: US-PFIZER INC-2018196346

PATIENT
  Age: 82 Year
  Sex: Female
  Weight: 63.5 kg

DRUGS (8)
  1. LISINOPRIL. [Concomitant]
     Active Substance: LISINOPRIL
     Indication: HYPERTENSION
     Dosage: 10 MG, 1X/DAY (IN AM)
     Route: 048
  2. TOVIAZ [Suspect]
     Active Substance: FESOTERODINE FUMARATE
     Indication: BLADDER DISORDER
     Dosage: 8 MG, 1X/DAY(1 TABLET TAKEN BY MOUTH IN 24 HOURS)
     Route: 048
     Dates: start: 20180423
  3. TOVIAZ [Suspect]
     Active Substance: FESOTERODINE FUMARATE
     Indication: URINARY INCONTINENCE
     Dosage: 8 MG, 1X/DAY
     Dates: start: 20180424
  4. LASIX [Concomitant]
     Active Substance: FUROSEMIDE
     Indication: JOINT SWELLING
  5. CEPHALEXIN. [Concomitant]
     Active Substance: CEPHALEXIN
     Indication: URINARY TRACT INFECTION
     Dosage: 1000 MG, DAILY (500 MG AM 500 MG PM)
     Dates: start: 20180606, end: 20180616
  6. LASIX [Concomitant]
     Active Substance: FUROSEMIDE
     Indication: PERIPHERAL SWELLING
     Dosage: 20 MG, AS NEEDED
     Route: 048
  7. POTASSIUM CHLORIDE. [Concomitant]
     Active Substance: POTASSIUM CHLORIDE
     Indication: CARDIAC DISORDER
     Dosage: 10 MG, AS NEEDED
     Route: 048
  8. NITROFURANTOIN MACROCRYSTALS [Concomitant]
     Active Substance: NITROFURANTOIN
     Indication: URINARY TRACT INFECTION
     Dosage: 50 MG, UNK(50MG PILL TAKEN BY MOUTH EVERY)
     Route: 048
     Dates: start: 2017

REACTIONS (3)
  - Lip erythema [Recovered/Resolved]
  - Lip dry [Recovered/Resolved]
  - Dry mouth [Recovered/Resolved]

NARRATIVE: CASE EVENT DATE: 20180509
